FAERS Safety Report 8357170-2 (Version None)
Quarter: 2012Q2

REPORT INFORMATION
  Report Type: 
  Country: None (occurrence: None)
  Receive Date: 20120514
  Receipt Date: 20120509
  Transmission Date: 20120825
  Serious: Yes (Other)
  Sender: FDA-Public Use
  Company Number: US-PFIZER INC-2012087532

PATIENT
  Sex: Male
  Weight: 58.96 kg

DRUGS (1)
  1. LIPITOR [Suspect]
     Indication: BLOOD CHOLESTEROL INCREASED
     Dosage: 40 MG, ONCE A DAY
     Route: 048

REACTIONS (3)
  - MYASTHENIA GRAVIS [None]
  - DEMENTIA ALZHEIMER'S TYPE [None]
  - THYROID DISORDER [None]
